FAERS Safety Report 24592465 (Version 2)
Quarter: 2024Q4

REPORT INFORMATION
  Report Type: Spontaneous
  Country: US (occurrence: US)
  Receive Date: 20241108
  Receipt Date: 20241205
  Transmission Date: 20250114
  Serious: Yes (Other)
  Sender: Kenvue
  Company Number: US-KENVUE-20241100212

PATIENT
  Sex: Female

DRUGS (1)
  1. AVOBENZONE, HOMOSALATE, OCTISALATE, OCTOCRYLENE [Suspect]
     Active Substance: AVOBENZONE\HOMOSALATE\OCTISALATE\OCTOCRYLENE
     Indication: Product used for unknown indication
     Dosage: UNK
     Route: 061
     Dates: start: 20241028

REACTIONS (6)
  - Application site pruritus [Unknown]
  - Application site swelling [Unknown]
  - Application site erythema [Unknown]
  - Throat tightness [Unknown]
  - Application site pain [Not Recovered/Not Resolved]
  - Application site exfoliation [Not Recovered/Not Resolved]

NARRATIVE: CASE EVENT DATE: 20241001
